FAERS Safety Report 18051442 (Version 2)
Quarter: 2021Q2

REPORT INFORMATION
  Report Type: Report from Study
  Country: US (occurrence: US)
  Receive Date: 20200721
  Receipt Date: 20210629
  Transmission Date: 20210717
  Serious: Yes (Hospitalization, Other)
  Sender: FDA-Public Use
  Company Number: US-TEVA-2020-US-1802814

PATIENT
  Age: 81 Year
  Sex: Female

DRUGS (1)
  1. PROPOFOL. [Suspect]
     Active Substance: PROPOFOL
     Indication: SEDATION
     Route: 065

REACTIONS (3)
  - Subarachnoid haemorrhage [Unknown]
  - Generalised tonic-clonic seizure [Unknown]
  - Brain oedema [Unknown]
